FAERS Safety Report 7234798-4 (Version None)
Quarter: 2011Q1

REPORT INFORMATION
  Report Type: 
  Country: None (occurrence: None)
  Receive Date: 20110120
  Receipt Date: 20110113
  Transmission Date: 20110831
  Serious: Yes (Hospitalization, Other)
  Sender: FDA-Public Use
  Company Number: US-ASTRAZENECA-2008UW07767

PATIENT
  Age: 38 Year
  Sex: Female
  Weight: 77.1 kg

DRUGS (31)
  1. METHADONE [Concomitant]
     Dates: start: 20060101
  2. VIOXX [Concomitant]
     Dates: start: 20030110
  3. WELLBUTRIN SR [Concomitant]
     Dates: start: 20000124
  4. RISPERDAL [Concomitant]
  5. THORAZINE [Concomitant]
     Dates: start: 20060101
  6. FOLIC ACID [Concomitant]
     Dates: start: 20000105
  7. ULTRAM [Concomitant]
     Dates: start: 20010101, end: 20020101
  8. SEROQUEL [Suspect]
     Indication: SCHIZOPHRENIA
     Dosage: 25 MG, 100 MG
     Route: 048
     Dates: start: 20000124
  9. SEROQUEL [Suspect]
     Indication: MAJOR DEPRESSION
     Dosage: 25 MG, 100 MG
     Route: 048
     Dates: start: 20000124
  10. SEROQUEL [Suspect]
     Dosage: 25MG, 100MG, 200MG, 300MG
     Route: 048
     Dates: start: 20010212, end: 20061109
  11. CLOZARIL [Concomitant]
  12. LEVAQUIN [Concomitant]
     Dates: start: 20030110
  13. OXYCODONE HCL AND ACETAMINOPHEN [Concomitant]
     Dosage: 5/325
     Dates: start: 20000104
  14. SEROQUEL [Suspect]
     Indication: BIPOLAR DISORDER
     Dosage: 25 MG, 100 MG
     Route: 048
     Dates: start: 20000124
  15. SEROQUEL [Suspect]
     Dosage: 25MG, 100MG, 200MG, 300MG
     Route: 048
     Dates: start: 20010212, end: 20061109
  16. PRILOSEC [Concomitant]
     Dates: start: 20000112
  17. TRAZODONE [Concomitant]
     Dates: start: 20000124
  18. SEROQUEL [Suspect]
     Dosage: 25MG, 100MG, 300MG
     Route: 048
     Dates: start: 20001209, end: 20030919
  19. SEROQUEL [Suspect]
     Dosage: 25MG, 100MG, 200MG, 300MG
     Route: 048
     Dates: start: 20010212, end: 20061109
  20. ZYPREXA [Concomitant]
  21. PROZAC [Concomitant]
     Dates: start: 20000124
  22. ULTRAM [Concomitant]
     Dates: start: 20000323
  23. SEROQUEL [Suspect]
     Dosage: 25MG, 100MG
     Route: 048
     Dates: start: 20000323, end: 20000815
  24. SEROQUEL [Suspect]
     Dosage: 25MG, 100MG
     Route: 048
     Dates: start: 20000323, end: 20000815
  25. SEROQUEL [Suspect]
     Dosage: 25MG, 100MG, 300MG
     Route: 048
     Dates: start: 20001209, end: 20030919
  26. DEXATRIM [Concomitant]
     Dates: start: 19790101, end: 19810101
  27. DEXATRIM [Concomitant]
     Dates: start: 20060101
  28. CLONAZEPAM [Concomitant]
     Dates: start: 20000124
  29. SEROQUEL [Suspect]
     Dosage: 25MG, 100MG
     Route: 048
     Dates: start: 20000323, end: 20000815
  30. SEROQUEL [Suspect]
     Dosage: 25MG, 100MG, 300MG
     Route: 048
     Dates: start: 20001209, end: 20030919
  31. GUANFACINE HYDROCHLORIDE [Concomitant]
     Dates: start: 20000112

REACTIONS (12)
  - BORDERLINE PERSONALITY DISORDER [None]
  - PANIC ATTACK [None]
  - DIABETES MELLITUS [None]
  - CONVULSION [None]
  - PANCREATITIS CHRONIC [None]
  - BLOOD CHOLESTEROL INCREASED [None]
  - INTERVERTEBRAL DISC DEGENERATION [None]
  - GLUCOSE TOLERANCE IMPAIRED [None]
  - DIABETES MELLITUS INADEQUATE CONTROL [None]
  - EPILEPSY [None]
  - HYPERSENSITIVITY [None]
  - HYPERLIPIDAEMIA [None]
